FAERS Safety Report 15321974 (Version 1)
Quarter: 2018Q3

REPORT INFORMATION
  Report Type: Report from Study
  Country: US (occurrence: US)
  Receive Date: 20180827
  Receipt Date: 20180827
  Transmission Date: 20181010
  Serious: Yes (Death)
  Sender: FDA-Public Use
  Company Number: PHHY2018US081909

PATIENT
  Age: 49 Year
  Sex: Male

DRUGS (1)
  1. ENTRESTO [Suspect]
     Active Substance: SACUBITRIL\VALSARTAN
     Indication: CARDIAC FAILURE
     Dosage: UNK UNK, QD
     Route: 048
     Dates: start: 20180629

REACTIONS (4)
  - Medical device site discharge [Fatal]
  - Cardiac arrest [Fatal]
  - Dizziness [Fatal]
  - Hyperhidrosis [Fatal]

NARRATIVE: CASE EVENT DATE: 20180708
